FAERS Safety Report 7570956-7 (Version None)
Quarter: 2011Q2

REPORT INFORMATION
  Report Type: 
  Country: None (occurrence: None)
  Receive Date: 20110624
  Receipt Date: 20110621
  Transmission Date: 20111010
  Serious: Yes (Death, Hospitalization, Other)
  Sender: FDA-Public Use
  Company Number: AU-AMGEN-AUSSP2011020828

PATIENT
  Sex: Male

DRUGS (1)
  1. NPLATE [Suspect]
     Indication: PRODUCT USED FOR UNKNOWN INDICATION

REACTIONS (7)
  - HEPATOMEGALY [None]
  - FALL [None]
  - PLATELET COUNT INCREASED [None]
  - CEREBROVASCULAR ACCIDENT [None]
  - SYNCOPE [None]
  - DYSPNOEA [None]
  - HEART RATE DECREASED [None]
